FAERS Safety Report 8433740-8 (Version None)
Quarter: 2012Q2

REPORT INFORMATION
  Report Type: 
  Country: None (occurrence: None)
  Receive Date: 20120613
  Receipt Date: 20120608
  Transmission Date: 20120825
  Serious: No
  Sender: FDA-Public Use
  Company Number: US-PFIZER INC-2012140163

PATIENT
  Sex: Female

DRUGS (13)
  1. VERAPAMIL HCL [Suspect]
     Dosage: UNK
  2. MACRODANTIN [Suspect]
     Dosage: UNK
  3. PREDNISONE [Suspect]
     Dosage: UNK
  4. OFLOXACIN [Suspect]
     Dosage: UNK
  5. CYMBALTA [Suspect]
     Dosage: UNK
  6. TICLID [Suspect]
     Dosage: UNK
  7. MACROBID [Suspect]
     Dosage: UNK
  8. FLAGYL [Suspect]
     Dosage: UNK
  9. CELESTONE [Suspect]
     Dosage: UNK
  10. AZITHROMYCIN [Suspect]
     Dosage: UNK
  11. OXYBUTYNIN [Suspect]
     Dosage: UNK
  12. PHENOBARBITAL TAB [Suspect]
     Dosage: UNK
  13. LYRICA [Suspect]
     Dosage: UNK

REACTIONS (1)
  - DRUG HYPERSENSITIVITY [None]
